FAERS Safety Report 23803805 (Version 2)
Quarter: 2024Q2

REPORT INFORMATION
  Report Type: Spontaneous
  Country: TN (occurrence: TN)
  Receive Date: 20240501
  Receipt Date: 20240510
  Transmission Date: 20240716
  Serious: Yes (Other)
  Sender: FDA-Public Use
  Company Number: TN-PFIZER INC-PV202400056351

PATIENT
  Age: 60 Year

DRUGS (1)
  1. IBRANCE [Suspect]
     Active Substance: PALBOCICLIB
     Dosage: 125 MG, CYCLIC (DAILY, 3 WEEKS/4)

REACTIONS (3)
  - Hepatitis [Unknown]
  - Transaminases increased [Recovered/Resolved]
  - Gastrointestinal disorder [Unknown]
